FAERS Safety Report 25282257 (Version 1)
Quarter: 2025Q2

REPORT INFORMATION
  Report Type: Spontaneous
  Country: US (occurrence: US)
  Receive Date: 20250508
  Receipt Date: 20250508
  Transmission Date: 20250717
  Serious: Yes (Other)
  Sender: CHENGDU SUNCADIA MEDICINE CO., LTD.
  Company Number: US-Chengdu Suncadia Medicine Co., Ltd.-2176389

PATIENT
  Sex: Female

DRUGS (5)
  1. TACROLIMUS [Suspect]
     Active Substance: TACROLIMUS
     Indication: Still^s disease
  2. CYCLOPHOSPHAMIDE [Suspect]
     Active Substance: CYCLOPHOSPHAMIDE
  3. EMAPALUMAB [Suspect]
     Active Substance: EMAPALUMAB
  4. RUXOLITINIB [Suspect]
     Active Substance: RUXOLITINIB
  5. ILARIS [Suspect]
     Active Substance: CANAKINUMAB

REACTIONS (2)
  - Interleukin level increased [Unknown]
  - Product use in unapproved indication [Unknown]
